FAERS Safety Report 11971550 (Version 5)
Quarter: 2019Q4

REPORT INFORMATION
  Report Type: Spontaneous
  Country: US (occurrence: US)
  Receive Date: 20160128
  Receipt Date: 20191025
  Transmission Date: 20200122
  Serious: Yes (Death, Other)
  Sender: FDA-Public Use
  Company Number: US-PFIZER INC-2016045621

PATIENT
  Age: 57 Year
  Sex: Male

DRUGS (1)
  1. VIAGRA [Suspect]
     Active Substance: SILDENAFIL CITRATE
     Indication: ERECTILE DYSFUNCTION
     Dosage: 50 MG, AS NEEDED (1-2 TIMES WEEKLY)
     Route: 048
     Dates: start: 20040106, end: 20141230

REACTIONS (4)
  - Emotional distress [Unknown]
  - Metastatic malignant melanoma [Fatal]
  - Anxiety [Unknown]
  - Malignant melanoma stage IV [Fatal]

NARRATIVE: CASE EVENT DATE: 20140204
